FAERS Safety Report 7803783-3 (Version None)
Quarter: 2011Q4

REPORT INFORMATION
  Report Type: 
  Country: None (occurrence: None)
  Receive Date: 20111010
  Receipt Date: 20111003
  Transmission Date: 20120403
  Serious: No
  Sender: FDA-Public Use
  Company Number: US-PFIZER INC-2011190775

PATIENT
  Sex: Male
  Weight: 81.633 kg

DRUGS (2)
  1. VIAGRA [Suspect]
     Dosage: 2 OF 50MG TABLETS, UNK
     Route: 048
  2. LOVASTATIN [Concomitant]
     Indication: BLOOD CHOLESTEROL ABNORMAL
     Dosage: 40 MG, DAILY

REACTIONS (1)
  - DRUG INEFFECTIVE [None]
